FAERS Safety Report 21681642 (Version 2)
Quarter: 2022Q4

REPORT INFORMATION
  Report Type: Spontaneous
  Country: US (occurrence: US)
  Receive Date: 20221205
  Receipt Date: 20221215
  Transmission Date: 20230112
  Serious: No
  Sender: FDA-Public Use
  Company Number: US-LUPIN PHARMACEUTICALS INC.-2022-14033

PATIENT

DRUGS (2)
  1. AZITHROMYCIN ANHYDROUS [Suspect]
     Active Substance: AZITHROMYCIN ANHYDROUS
     Indication: Influenza
     Dosage: UNK TOOK 2 TABLETS  (2 TABLETS ON 18-NOV-2022 AND 1 TABLET EACH DAY FROM 19-NOV-2022 TO 22-NOV-2022)
     Route: 065
     Dates: start: 20221118
  2. AZITHROMYCIN ANHYDROUS [Suspect]
     Active Substance: AZITHROMYCIN ANHYDROUS
     Indication: Pneumonia

REACTIONS (3)
  - Diarrhoea [Unknown]
  - Faeces discoloured [Unknown]
  - Off label use [Unknown]

NARRATIVE: CASE EVENT DATE: 20221123
